FAERS Safety Report 11786333 (Version 3)
Quarter: 2015Q4

REPORT INFORMATION
  Report Type: Report from Study
  Country: US (occurrence: US)
  Receive Date: 20151130
  Receipt Date: 20151223
  Transmission Date: 20160305
  Serious: Yes (Other)
  Sender: FDA-Public Use
  Company Number: US-SA-2015SA079710

PATIENT
  Age: 34 Year
  Sex: Male
  Weight: 126 kg

DRUGS (24)
  1. EZETIMIBE. [Concomitant]
     Active Substance: EZETIMIBE
     Route: 048
     Dates: start: 20141222
  2. PANTOPRAZOLE SODIUM. [Concomitant]
     Active Substance: PANTOPRAZOLE SODIUM
     Dosage: 40 MG ORAL PACKET: 1 PACKET 2 TIMES DAILY?ORAL
     Route: 048
     Dates: start: 20121126
  3. ZETIA [Concomitant]
     Active Substance: EZETIMIBE
     Dosage: QTY: 90 TABLETS FOR 90 DAYS REFILL 4
     Route: 048
     Dates: start: 20141222
  4. KYNAMRO [Suspect]
     Active Substance: MIPOMERSEN SODIUM
     Indication: TYPE IIA HYPERLIPIDAEMIA
     Dosage: EVERY WEEK
     Route: 065
     Dates: start: 20150505, end: 20150526
  5. ASPIRIN. [Concomitant]
     Active Substance: ASPIRIN
     Indication: PROPHYLAXIS
     Route: 048
     Dates: start: 20130124
  6. KYNAMRO [Suspect]
     Active Substance: MIPOMERSEN SODIUM
     Indication: TYPE IIA HYPERLIPIDAEMIA
     Route: 065
     Dates: start: 20150721, end: 20150721
  7. NICOTINE. [Concomitant]
     Active Substance: NICOTINE
     Route: 048
     Dates: start: 20130124
  8. LISDEXAMFETAMINE MESILATE [Concomitant]
     Active Substance: LISDEXAMFETAMINE DIMESYLATE
     Route: 048
     Dates: start: 20121126
  9. FLUVASTATIN SODIUM. [Concomitant]
     Active Substance: FLUVASTATIN SODIUM
     Route: 048
     Dates: start: 20140915
  10. CARVEDILOL. [Concomitant]
     Active Substance: CARVEDILOL
     Indication: HYPERTENSION
     Dosage: 1 TABLET 2 TIMES DAILY ORAL?QTY: 180 TABLETS FOR 90 DAYS
     Route: 048
     Dates: start: 20130521
  11. METFORMIN [Concomitant]
     Active Substance: METFORMIN HYDROCHLORIDE
     Indication: TYPE 2 DIABETES MELLITUS
     Route: 048
     Dates: start: 20150201
  12. COLESEVELAM HYDROCHLORIDE [Concomitant]
     Active Substance: COLESEVELAM HYDROCHLORIDE
     Route: 048
     Dates: start: 20141112
  13. PREDNISONE. [Concomitant]
     Active Substance: PREDNISONE
     Route: 048
     Dates: start: 20150609
  14. WELCHOL [Concomitant]
     Active Substance: COLESEVELAM HYDROCHLORIDE
     Dosage: 3 TABLETS DAILY?QTY: 180 TABLETS FOR 30 DAYS REFILL 4
     Route: 048
     Dates: start: 20141112
  15. VITAMIN D [Concomitant]
     Active Substance: CHOLECALCIFEROL
     Dosage: DOSE:5000 UNIT(S)
     Route: 048
  16. ALBUTEROL SULFATE. [Concomitant]
     Active Substance: ALBUTEROL SULFATE
     Route: 055
     Dates: start: 20150529, end: 20150607
  17. LISINOPRIL. [Concomitant]
     Active Substance: LISINOPRIL
     Route: 048
     Dates: start: 20151208
  18. KYNAMRO [Suspect]
     Active Substance: MIPOMERSEN SODIUM
     Indication: TYPE IIA HYPERLIPIDAEMIA
     Dosage: PARTIAL DOSE
     Route: 065
     Dates: start: 20150623, end: 20150623
  19. MELATONIN [Concomitant]
     Active Substance: MELATONIN
     Dosage: 2 CAPSULES AS NEEDED
     Route: 048
  20. LISINOPRIL. [Concomitant]
     Active Substance: LISINOPRIL
     Route: 048
     Dates: start: 20150516, end: 20151208
  21. KYNAMRO [Suspect]
     Active Substance: MIPOMERSEN SODIUM
     Indication: TYPE IIA HYPERLIPIDAEMIA
     Dates: start: 20150609, end: 20150609
  22. KYNAMRO [Suspect]
     Active Substance: MIPOMERSEN SODIUM
     Indication: TYPE IIA HYPERLIPIDAEMIA
     Route: 065
     Dates: start: 20150630, end: 20150707
  23. LESCOL [Concomitant]
     Active Substance: FLUVASTATIN SODIUM
     Dosage: EXTENDED RELEASE 24 HOURS; 1 TABLET DAILY?QTY: 90 TABLETS FOR 90 DAYS REFILL 4 DAW
     Route: 048
     Dates: start: 20140915
  24. LISINOPRIL. [Concomitant]
     Active Substance: LISINOPRIL
     Dosage: ONCE A DAY BEFORE BED TIME?QTY 90 TABLETS FOR 90 DAYS REFILL 4
     Route: 048
     Dates: start: 20150316

REACTIONS (3)
  - Dysphagia [Recovered/Resolved]
  - Urticaria [Recovered/Resolved with Sequelae]
  - Urticaria [Recovered/Resolved]

NARRATIVE: CASE EVENT DATE: 20150527
